FAERS Safety Report 6762441-7 (Version None)
Quarter: 2010Q2

REPORT INFORMATION
  Report Type: 
  Country: None (occurrence: None)
  Receive Date: 20100609
  Receipt Date: 20100601
  Transmission Date: 20101027
  Serious: Yes (Hospitalization)
  Sender: FDA-Public Use
  Company Number: US-ROCHE-707825

PATIENT
  Sex: Female

DRUGS (2)
  1. BEVACIZUMAB [Suspect]
     Indication: ENDOMETRIAL CANCER
     Dosage: OVER 30 - 90 MIN ON DAY 1 AND 15
     Route: 042
     Dates: start: 20100210
  2. TEMSIROLIMUS [Suspect]
     Indication: ENDOMETRIAL CANCER
     Dosage: OVER 30 MIN ON DAY 1, 8 AND 22.
     Route: 042
     Dates: start: 20100210

REACTIONS (4)
  - DECREASED APPETITE [None]
  - DIARRHOEA [None]
  - DYSGEUSIA [None]
  - PRURITUS [None]
